FAERS Safety Report 20561816 (Version 2)
Quarter: 2022Q2

REPORT INFORMATION
  Report Type: Spontaneous
  Country: JP (occurrence: JP)
  Receive Date: 20220307
  Receipt Date: 20220614
  Transmission Date: 20220721
  Serious: Yes (Other)
  Sender: FDA-Public Use
  Company Number: JP-BRISTOL-MYERS SQUIBB COMPANY-BMS-2022-031120

PATIENT
  Age: 8 Decade
  Sex: Female

DRUGS (25)
  1. EMPLICITI [Suspect]
     Active Substance: ELOTUZUMAB
     Indication: Plasma cell myeloma
     Dosage: ???42???
     Dates: start: 20170126
  2. REVLIMID [Suspect]
     Active Substance: LENALIDOMIDE
     Indication: Plasma cell myeloma
     Dosage: 5 ?????, BID?4???
     Route: 048
     Dates: start: 20130926
  3. REVLIMID [Suspect]
     Active Substance: LENALIDOMIDE
     Dosage: 5 ?????
     Route: 048
     Dates: start: 20170126
  4. REVLIMID [Suspect]
     Active Substance: LENALIDOMIDE
     Dosage: 5 ??????3???
     Route: 048
     Dates: start: 20200721
  5. POMALYST [Suspect]
     Active Substance: POMALIDOMIDE
     Indication: Plasma cell myeloma
     Dosage: 2 ?????
     Dates: start: 20210524, end: 20210611
  6. POMALYST [Suspect]
     Active Substance: POMALIDOMIDE
     Dosage: 2 ?????
     Dates: start: 20210621
  7. POMALYST [Suspect]
     Active Substance: POMALIDOMIDE
     Dosage: 2 ?????
     Dates: start: 20210628
  8. POMALYST [Suspect]
     Active Substance: POMALIDOMIDE
     Dosage: ?? ??, QOD
     Dates: start: 20210728
  9. POMALYST [Suspect]
     Active Substance: POMALIDOMIDE
     Dosage: ??
     Dates: start: 20210825
  10. POMALYST [Suspect]
     Active Substance: POMALIDOMIDE
     Dosage: ??
     Dates: start: 20210922
  11. POMALYST [Suspect]
     Active Substance: POMALIDOMIDE
     Dosage: ??
     Dates: start: 20211020
  12. POMALYST [Suspect]
     Active Substance: POMALIDOMIDE
     Dosage: ??
     Dates: start: 20211117
  13. POMALYST [Suspect]
     Active Substance: POMALIDOMIDE
     Dosage: ??
     Dates: start: 20211215
  14. POMALYST [Suspect]
     Active Substance: POMALIDOMIDE
     Dosage: ??
     Dates: start: 20220112
  15. POMALYST [Suspect]
     Active Substance: POMALIDOMIDE
     Dosage: ??
     Dates: start: 20220209
  16. LENADEX [Suspect]
     Active Substance: DEXAMETHASONE ACETATE
     Indication: Plasma cell myeloma
     Route: 048
     Dates: start: 20130129
  17. LENADEX [Suspect]
     Active Substance: DEXAMETHASONE ACETATE
     Indication: Plasma cell myeloma recurrent
     Dosage: ???2???
     Route: 048
     Dates: start: 20200604
  18. LENADEX [Suspect]
     Active Substance: DEXAMETHASONE ACETATE
     Dosage: ???3???
     Route: 048
     Dates: start: 20200721
  19. LENADEX [Suspect]
     Active Substance: DEXAMETHASONE ACETATE
     Dosage: ???10???
     Route: 048
     Dates: start: 20210524
  20. LENADEX [Suspect]
     Active Substance: DEXAMETHASONE ACETATE
     Route: 048
     Dates: start: 20170126
  21. LENADEX [Suspect]
     Active Substance: DEXAMETHASONE ACETATE
     Route: 048
     Dates: start: 20130430
  22. LENADEX [Suspect]
     Active Substance: DEXAMETHASONE ACETATE
     Route: 048
     Dates: start: 20161110
  23. CARFILZOMIB [Suspect]
     Active Substance: CARFILZOMIB
     Indication: Plasma cell myeloma
     Dosage: ???2???
     Dates: start: 20200604
  24. IXAZOMIB CITRATE [Suspect]
     Active Substance: IXAZOMIB CITRATE
     Indication: Plasma cell myeloma
     Dosage: 3 ??????3???
     Dates: start: 20200721
  25. ISATUXIMAB [Suspect]
     Active Substance: ISATUXIMAB
     Indication: Plasma cell myeloma
     Dosage: ???10???
     Dates: start: 20210524

REACTIONS (8)
  - Polyarteritis nodosa [Unknown]
  - Brain natriuretic peptide decreased [Recovering/Resolving]
  - Cardiovascular disorder [Unknown]
  - Fatigue [Recovering/Resolving]
  - Hypoaesthesia [Unknown]
  - Oedema [Unknown]
  - Rash [Unknown]
  - Malignant neoplasm progression [Unknown]

NARRATIVE: CASE EVENT DATE: 20130926
